FAERS Safety Report 5701680-0 (Version None)
Quarter: 2008Q2

REPORT INFORMATION
  Report Type: 
  Country: None (occurrence: None)
  Receive Date: 20080408
  Receipt Date: 20080331
  Transmission Date: 20081010
  Serious: Yes (Other)
  Sender: FDA-Public Use
  Company Number: 2008S1000102

PATIENT
  Age: 48 Year
  Sex: Female
  Weight: 270 kg

DRUGS (14)
  1. SORIATANE [Suspect]
     Indication: PSORIASIS
     Dosage: 25 MG; BID; PO
     Route: 048
     Dates: start: 20060101, end: 20070101
  2. ACCUPRIL [Concomitant]
  3. CLONIDINE HCL [Concomitant]
  4. PROPAFENONE HCL [Concomitant]
  5. KLOR-CON [Concomitant]
  6. THEO-24 [Concomitant]
  7. PREMARIN [Concomitant]
  8. CLONAZEPAM [Concomitant]
  9. ASPIRIN [Concomitant]
  10. QVAR 40 [Concomitant]
  11. CLOBEX /00337102/ [Concomitant]
  12. TACLONEX [Concomitant]
  13. ATARAX /00058401/ [Concomitant]
  14. ENBREL [Concomitant]

REACTIONS (14)
  - ABDOMINAL PAIN UPPER [None]
  - ACTIVITIES OF DAILY LIVING IMPAIRED [None]
  - ALOPECIA [None]
  - ANOREXIA [None]
  - DIARRHOEA [None]
  - GAIT DISTURBANCE [None]
  - HEADACHE [None]
  - HYPERTRIGLYCERIDAEMIA [None]
  - NAUSEA [None]
  - ONYCHOMADESIS [None]
  - PAIN IN EXTREMITY [None]
  - SKIN EXFOLIATION [None]
  - VOMITING [None]
  - WEIGHT DECREASED [None]
